FAERS Safety Report 19454669 (Version 1)
Quarter: 2021Q2

REPORT INFORMATION
  Report Type: Spontaneous
  Country: FR (occurrence: FR)
  Receive Date: 20210623
  Receipt Date: 20210623
  Transmission Date: 20210717
  Serious: Yes (Death, Other)
  Sender: FDA-Public Use
  Company Number: FR-PFIZER INC-2019072680

PATIENT
  Age: 74 Year
  Sex: Female

DRUGS (33)
  1. HYDROCORTISONE ROUSSEL [Suspect]
     Active Substance: HYDROCORTISONE
     Dosage: 60 MG, 3X/DAY (MORNING, MIDDAY, EVENING)
     Route: 048
     Dates: start: 20181207, end: 20181214
  2. SPASFON [PHLOROGLUCINOL;TRIMETHYLPHLOROGLUCINOL] [Suspect]
     Active Substance: PHLOROGLUCINOL\1,3,5-TRIMETHOXYBENZENE
     Dosage: 80 MG, AS NEEDED
     Route: 048
     Dates: start: 20181130, end: 20181213
  3. WARFARIN SODIUM. [Suspect]
     Active Substance: WARFARIN SODIUM
     Dosage: 3 MG, QD
     Route: 048
     Dates: start: 20181203, end: 20181210
  4. TRIMEBUTINE [Suspect]
     Active Substance: TRIMEBUTINE
     Dosage: 300 MG, QD, 1 MORNING, 1 NOON, 1 EVENING
     Route: 048
     Dates: start: 20181207
  5. CEFTRIAXONE. [Suspect]
     Active Substance: CEFTRIAXONE
     Dosage: 1 G, 1X/DAY
     Route: 042
     Dates: start: 20181126, end: 20181129
  6. HYDROCORTISONE ROUSSEL [Suspect]
     Active Substance: HYDROCORTISONE
     Dosage: UNK (DECREASED)
     Dates: start: 201812
  7. LASILIX FAIBLE [Suspect]
     Active Substance: FUROSEMIDE
     Indication: OEDEMA PERIPHERAL
     Dosage: 500 MG, DAILY (Q24H)
     Route: 042
     Dates: start: 20181130, end: 20181209
  8. EFFORTIL [Suspect]
     Active Substance: ETILEFRINE HYDROCHLORIDE
     Dosage: 25 MG, QD
     Route: 048
     Dates: start: 20181130, end: 20181208
  9. CALCIUM FOLINATE [Suspect]
     Active Substance: LEUCOVORIN CALCIUM
     Dosage: 10 MG, UNK
     Route: 048
     Dates: start: 20181201
  10. AMOXICILLIN+CLAVULANIC ACID [Suspect]
     Active Substance: AMOXICILLIN\CLAVULANIC ACID
     Indication: CHOLECYSTITIS ACUTE
     Dosage: 3 G, 1X/DAY
     Route: 042
     Dates: start: 20181129, end: 20181211
  11. DIFFU K [Suspect]
     Active Substance: POTASSIUM CHLORIDE
     Dosage: 1800 MG, 3X/DAY (MORNING, MIDDAY, EVENING)
     Route: 048
     Dates: start: 20181206, end: 20181212
  12. COUMADINE [Suspect]
     Active Substance: WARFARIN SODIUM
     Dosage: 3 MG, 1X/DAY
     Route: 048
     Dates: start: 20181203, end: 20181210
  13. PARACETAMOL [Suspect]
     Active Substance: ACETAMINOPHEN
     Indication: PAIN
     Dosage: 1 G, UNK
     Route: 042
     Dates: start: 20181130
  14. LANSOPRAZOLE. [Suspect]
     Active Substance: LANSOPRAZOLE
     Dosage: 30 MG, QD
     Route: 048
     Dates: start: 20181208, end: 20181213
  15. SPIRONOLACTONE. [Suspect]
     Active Substance: SPIRONOLACTONE
     Dosage: 50 MG, QD
     Route: 048
     Dates: start: 20181130
  16. ESIDREX [Suspect]
     Active Substance: HYDROCHLOROTHIAZIDE
     Dosage: 25 MG, 1X/DAY
     Route: 048
     Dates: start: 20181130, end: 20181208
  17. HYDROCHLOROTHIAZIDE. [Suspect]
     Active Substance: HYDROCHLOROTHIAZIDE
     Dosage: 25 MG, QD
     Route: 048
     Dates: start: 20181130, end: 20181208
  18. POTASSIUM CHLORIDE. [Suspect]
     Active Substance: POTASSIUM CHLORIDE
     Dosage: 1800 MG, QD, 1 MORNING, 1 AFTERNOON AND 1 EVENING
     Route: 048
     Dates: start: 20181206, end: 20181212
  19. PHLOROGLUCINOL [Suspect]
     Active Substance: PHLOROGLUCINOL
     Indication: PRODUCT USED FOR UNKNOWN INDICATION
     Dosage: 80 MG, PRN
     Route: 048
     Dates: start: 20181130, end: 20181213
  20. TRIMEBUTINE ARROW [Suspect]
     Active Substance: TRIMEBUTINE MALEATE
     Dosage: 300 MG, 3X/DAY (MORNING, MIDDAY, EVENING)
     Route: 048
     Dates: start: 20181207
  21. AMIKACINE [Suspect]
     Active Substance: AMIKACIN
     Dosage: 1 G, 1X/DAY
     Route: 042
     Dates: start: 20181126, end: 20181127
  22. HEPARINE SODIUM PANPHARMA [Suspect]
     Active Substance: HEPARIN SODIUM
     Dosage: 1250 IU, (QUAQUE HORA)
     Route: 042
     Dates: start: 20181130, end: 20181212
  23. FUNGIZONE [Suspect]
     Active Substance: AMPHOTERICIN B
     Dosage: 15 ML, 1X/DAY
     Route: 048
     Dates: start: 20181206, end: 20181213
  24. FORLAX [Suspect]
     Active Substance: POLYETHYLENE GLYCOL 4000
     Dosage: 1 DF, 1X/DAY (MORNING)
     Route: 048
     Dates: start: 20181207
  25. PARACETAMOL B. BRAUN [Suspect]
     Active Substance: ACETAMINOPHEN
     Indication: PAIN
     Dosage: 1 G, AS NEEDED
     Route: 042
     Dates: start: 20181130
  26. AMPHOTERICINE B [Suspect]
     Active Substance: AMPHOTERICIN B
     Dosage: 15 ML, QD
     Route: 048
     Dates: start: 20181206, end: 20181213
  27. RENVELA [Suspect]
     Active Substance: SEVELAMER CARBONATE
     Dosage: 2400 MG, 1X/DAY
     Route: 048
     Dates: start: 20181204, end: 20181210
  28. SPIRONOLACTONE ARROW [Suspect]
     Active Substance: SPIRONOLACTONE
     Dosage: 50 MG, 1X/DAY
     Route: 048
     Dates: start: 20181130
  29. LANSOPRAZOLE MYLAN [Suspect]
     Active Substance: LANSOPRAZOLE
     Dosage: 30 MG, 1X/DAY
     Route: 048
     Dates: start: 20181208, end: 20181213
  30. FUROSEMIDE TEVA [Suspect]
     Active Substance: FUROSEMIDE
     Indication: OEDEMA PERIPHERAL
     Dosage: 500 MG, UNK
     Route: 048
     Dates: start: 20181209
  31. FUROSEMIDE/RAMIPRIL [Suspect]
     Active Substance: FUROSEMIDE\RAMIPRIL
     Indication: OEDEMA PERIPHERAL
     Dosage: 500 MG
     Route: 048
     Dates: start: 20181209
  32. HEPARIN SODIUM. [Suspect]
     Active Substance: HEPARIN SODIUM
     Dosage: 1250 IU, QH
     Route: 042
     Dates: start: 20181130, end: 20181212
  33. EFFORTIL [Suspect]
     Active Substance: ETILEFRINE HYDROCHLORIDE
     Dosage: 10 MG
     Route: 048
     Dates: start: 20181201

REACTIONS (4)
  - Eosinophilia [Recovered/Resolved]
  - Renal failure [Not Recovered/Not Resolved]
  - Pyrexia [Recovered/Resolved]
  - Rash erythematous [Recovering/Resolving]

NARRATIVE: CASE EVENT DATE: 201812
